FAERS Safety Report 9201141 (Version 1)
Quarter: 2013Q2

REPORT INFORMATION
  Report Type: Spontaneous
  Country: US (occurrence: US)
  Receive Date: 20130401
  Receipt Date: 20130401
  Transmission Date: 20140414
  Serious: Yes (Hospitalization, Other)
  Sender: FDA-Public Use
  Company Number: PHEH2013US002447

PATIENT
  Age: 64 Year
  Sex: Male

DRUGS (1)
  1. EXELON PATCH [Suspect]
     Indication: DEMENTIA ALZHEIMER^S TYPE
     Dosage: 9.5 MG, DAILY
     Route: 062
     Dates: start: 20110101

REACTIONS (4)
  - Pulmonary oedema [Recovered/Resolved]
  - Pelvic fracture [Recovered/Resolved]
  - Fall [Recovered/Resolved]
  - Depression [Recovered/Resolved]
